FAERS Safety Report 22332696 (Version 8)
Quarter: 2024Q1

REPORT INFORMATION
  Report Type: Report from Study
  Country: MX (occurrence: MX)
  Receive Date: 20230517
  Receipt Date: 20240109
  Transmission Date: 20240409
  Serious: Yes (Hospitalization)
  Sender: FDA-Public Use
  Company Number: MX-002147023-NVSC2023MX112426

PATIENT
  Age: 37 Year
  Sex: Female
  Weight: 54 kg

DRUGS (11)
  1. GILENYA [Suspect]
     Active Substance: FINGOLIMOD HYDROCHLORIDE
     Indication: Multiple sclerosis
     Dosage: 0.5 MG, QD (1 OF 0.5 MG)
     Route: 048
     Dates: start: 2017
  2. GILENYA [Suspect]
     Active Substance: FINGOLIMOD HYDROCHLORIDE
     Dosage: 0.5 MG, QD
     Route: 048
     Dates: start: 20220127
  3. GILENYA [Suspect]
     Active Substance: FINGOLIMOD HYDROCHLORIDE
     Dosage: 0.5 MG, QD (1 OF 0.5 MG)
     Route: 048
     Dates: start: 20230127
  4. GILENYA [Suspect]
     Active Substance: FINGOLIMOD HYDROCHLORIDE
     Dosage: 0.5 MG, EVERY THIRD DAY
     Route: 048
  5. GILENYA [Suspect]
     Active Substance: FINGOLIMOD HYDROCHLORIDE
     Dosage: 0.5 MG, QD (STOPPED TWO WEEKS AGO)
     Route: 048
  6. GILENYA [Suspect]
     Active Substance: FINGOLIMOD HYDROCHLORIDE
     Dosage: 0.5 MG, QD (STARTED TWO WEEKS AGO)
     Route: 048
     Dates: end: 20230828
  7. GILENYA [Suspect]
     Active Substance: FINGOLIMOD HYDROCHLORIDE
     Dosage: 0.5 MG, QD
     Route: 048
     Dates: start: 20230829
  8. PREGABALIN [Suspect]
     Active Substance: PREGABALIN
     Indication: Pain in extremity
     Dosage: 75 MG, QD (1 OF 75 MG)
     Route: 048
     Dates: start: 20230129, end: 20230215
  9. PREGABALIN [Suspect]
     Active Substance: PREGABALIN
     Dosage: 150 MG, UNK
     Route: 065
  10. PREGABALIN [Suspect]
     Active Substance: PREGABALIN
     Dosage: 75 MG, QD, 1 TABLET IN CASE OF NEED (STARTED 5 MONTHS AGO)
     Route: 048
  11. CELEBREX [Suspect]
     Active Substance: CELECOXIB
     Indication: Pain in extremity
     Dosage: 200 MG, QD (1 OF 200 MG)
     Route: 048
     Dates: start: 20230129

REACTIONS (13)
  - Fall [Recovered/Resolved]
  - Gait disturbance [Recovered/Resolved]
  - Pain in extremity [Not Recovered/Not Resolved]
  - Multiple sclerosis relapse [Recovered/Resolved]
  - Pain [Not Recovered/Not Resolved]
  - Memory impairment [Unknown]
  - Skin abrasion [Not Recovered/Not Resolved]
  - Fall [Not Recovered/Not Resolved]
  - Face injury [Unknown]
  - Somnolence [Unknown]
  - Headache [Not Recovered/Not Resolved]
  - Inappropriate schedule of product administration [Recovered/Resolved]
  - Drug ineffective [Unknown]

NARRATIVE: CASE EVENT DATE: 20230129
